FAERS Safety Report 5723065-3 (Version None)
Quarter: 2008Q2

REPORT INFORMATION
  Report Type: 
  Country: None (occurrence: None)
  Receive Date: 20080430
  Receipt Date: 20080207
  Transmission Date: 20081010
  Serious: No
  Sender: FDA-Public Use
  Company Number: US-KINGPHARMUSA00001-K200800170

PATIENT

DRUGS (3)
  1. VIROPTIC SOLUTION [Suspect]
     Indication: HERPES OPHTHALMIC
     Dosage: 4 TIMES DAILY, FOR 3 TO 5 DAYS, PRN
     Dates: start: 19700301
  2. ACYCLOVIR [Concomitant]
     Indication: HERPES VIRUS INFECTION
  3. LOTEMAX [Concomitant]
     Indication: HERPES VIRUS INFECTION

REACTIONS (3)
  - EYELID OEDEMA [None]
  - LACRIMATION INCREASED [None]
  - OCULAR HYPERAEMIA [None]
